FAERS Safety Report 7972165-6 (Version None)
Quarter: 2011Q4

REPORT INFORMATION
  Report Type: 
  Country: None (occurrence: None)
  Receive Date: 20111212
  Receipt Date: 20111201
  Transmission Date: 20120403
  Serious: Yes (Hospitalization)
  Sender: FDA-Public Use
  Company Number: US-BAXTER-2011BH037967

PATIENT
  Sex: Female

DRUGS (2)
  1. PAIN MEDICATION [Suspect]
     Indication: POSTOPERATIVE ANALGESIA
  2. DIANEAL [Suspect]
     Indication: PERITONEAL DIALYSIS
     Route: 033

REACTIONS (4)
  - LETHARGY [None]
  - WOUND [None]
  - GANGRENE [None]
  - AGGRESSION [None]
